FAERS Safety Report 24642556 (Version 4)
Quarter: 2025Q4

REPORT INFORMATION
  Report Type: Report from Study
  Country: US (occurrence: US)
  Receive Date: 20241120
  Receipt Date: 20251001
  Transmission Date: 20260119
  Serious: Yes (Other)
  Sender: ABBVIE
  Company Number: US-ABBVIE-5948829

PATIENT
  Age: 69 Year
  Sex: Female

DRUGS (4)
  1. RINVOQ [Suspect]
     Active Substance: UPADACITINIB
     Indication: Colitis ulcerative
     Route: 048
     Dates: start: 20230911, end: 20241014
  2. RINVOQ [Suspect]
     Active Substance: UPADACITINIB
     Indication: Colitis ulcerative
     Route: 048
     Dates: start: 20230810
  3. RINVOQ [Suspect]
     Active Substance: UPADACITINIB
     Indication: Colitis ulcerative
     Route: 048
     Dates: start: 20241019
  4. RINVOQ [Suspect]
     Active Substance: UPADACITINIB
     Indication: Colitis ulcerative
     Dosage: DOSE CHANGED
     Route: 048
     Dates: start: 202309

REACTIONS (13)
  - Hip arthroplasty [Recovering/Resolving]
  - Back disorder [Unknown]
  - Fatigue [Not Recovered/Not Resolved]
  - Colitis ulcerative [Recovering/Resolving]
  - Dehydration [Not Recovered/Not Resolved]
  - Drug ineffective [Unknown]
  - Large intestine polyp [Recovering/Resolving]
  - Poor quality sleep [Unknown]
  - Gastrointestinal tract irritation [Recovering/Resolving]
  - Neuropathy peripheral [Unknown]
  - Osteoarthritis [Unknown]
  - Arthritis [Unknown]
  - Pain [Unknown]

NARRATIVE: CASE EVENT DATE: 20240301
